FAERS Safety Report 25264969 (Version 1)
Quarter: 2025Q2

REPORT INFORMATION
  Report Type: Spontaneous
  Country: US (occurrence: US)
  Receive Date: 20250502
  Receipt Date: 20250502
  Transmission Date: 20250716
  Serious: Yes (Hospitalization, Other)
  Sender: JOHNSON AND JOHNSON
  Company Number: US-JNJFOC-20250434528

PATIENT
  Sex: Female

DRUGS (29)
  1. SPRAVATO [Suspect]
     Active Substance: ESKETAMINE
     Indication: Depression
     Dosage: FOR 4 WEEKS
     Route: 045
  2. SPRAVATO [Suspect]
     Active Substance: ESKETAMINE
     Indication: Major depression
     Route: 045
  3. SPRAVATO [Suspect]
     Active Substance: ESKETAMINE
     Route: 045
  4. SPRAVATO [Suspect]
     Active Substance: ESKETAMINE
     Dosage: FOR 4 WEEKS
     Route: 045
  5. SPRAVATO [Suspect]
     Active Substance: ESKETAMINE
     Route: 045
  6. SPRAVATO [Suspect]
     Active Substance: ESKETAMINE
     Dosage: FOR 2 WEEKS
     Route: 045
  7. SPRAVATO [Suspect]
     Active Substance: ESKETAMINE
     Route: 045
  8. FLUOXETINE [Concomitant]
     Active Substance: FLUOXETINE HYDROCHLORIDE
     Indication: Depression
  9. NALTREXONE [Concomitant]
     Active Substance: NALTREXONE
     Indication: Borderline personality disorder
  10. ARIPIPRAZOLE [Concomitant]
     Active Substance: ARIPIPRAZOLE
     Indication: Psychotic disorder
  11. ZOLPIDEM [Concomitant]
     Active Substance: ZOLPIDEM TARTRATE
     Indication: Sleep disorder
  12. TOPIRAMATE [Concomitant]
     Active Substance: TOPIRAMATE
     Indication: Product used for unknown indication
  13. QUETIAPINE [Concomitant]
     Active Substance: QUETIAPINE
     Indication: Sleep disorder
  14. QUETIAPINE [Concomitant]
     Active Substance: QUETIAPINE
     Indication: Depression
  15. QUETIAPINE [Concomitant]
     Active Substance: QUETIAPINE
     Indication: Psychotic disorder
  16. CANNABIS SATIVA SUBSP. INDICA TOP [Concomitant]
     Active Substance: CANNABIS SATIVA SUBSP. INDICA TOP
     Indication: Post-traumatic stress disorder
  17. LAMOTRIGINE [Concomitant]
     Active Substance: LAMOTRIGINE
     Indication: Depression
  18. PRAZOSIN [Concomitant]
     Active Substance: PRAZOSIN
     Indication: Post-traumatic stress disorder
  19. LURASIDONE [Concomitant]
     Active Substance: LURASIDONE
     Indication: Psychotic disorder
  20. OLANZAPINE [Concomitant]
     Active Substance: OLANZAPINE
     Indication: Psychotic disorder
  21. ZIPRASIDONE [Concomitant]
     Active Substance: ZIPRASIDONE
     Indication: Psychotic disorder
  22. GABAPENTIN [Concomitant]
     Active Substance: GABAPENTIN
     Indication: Anxiety
  23. CLONAZEPAM [Concomitant]
     Active Substance: CLONAZEPAM
     Indication: Anxiety
  24. CLONAZEPAM [Concomitant]
     Active Substance: CLONAZEPAM
  25. HYDROXYZINE [Concomitant]
     Active Substance: HYDROXYZINE HYDROCHLORIDE
     Indication: Anxiety
  26. DIPHENHYDRAMINE [Concomitant]
     Active Substance: DIPHENHYDRAMINE
     Indication: Sleep disorder
  27. TRAZODONE [Concomitant]
     Active Substance: TRAZODONE HYDROCHLORIDE
     Indication: Sleep disorder
  28. NALTREXONE [Concomitant]
     Active Substance: NALTREXONE
     Indication: Borderline personality disorder
  29. NALTREXONE [Concomitant]
     Active Substance: NALTREXONE
     Indication: Self-destructive behaviour

REACTIONS (4)
  - Depression [Unknown]
  - Suicide attempt [Unknown]
  - Major depression [Unknown]
  - Product dose omission issue [Unknown]
